FAERS Safety Report 6626489-5 (Version None)
Quarter: 2010Q1

REPORT INFORMATION
  Report Type: 
  Country: None (occurrence: None)
  Receive Date: 20100310
  Receipt Date: 20100305
  Transmission Date: 20100710
  Serious: Yes (Death)
  Sender: FDA-Public Use
  Company Number: US-GILEAD-2010-0027016

PATIENT
  Sex: Female

DRUGS (15)
  1. LETAIRIS [Suspect]
     Indication: PULMONARY ARTERIAL HYPERTENSION
     Route: 048
     Dates: start: 20081113, end: 20100121
  2. REVATIO [Concomitant]
  3. FUROSEMIDE [Concomitant]
  4. SPIRONOLACTONE [Concomitant]
  5. IMURAN [Concomitant]
  6. ADVAIR DISKUS 100/50 [Concomitant]
  7. ALBUTEROL [Concomitant]
  8. AMBIEN [Concomitant]
  9. VALIUM [Concomitant]
  10. VICODIN [Concomitant]
  11. SEPTRA [Concomitant]
  12. PREDNISONE [Concomitant]
  13. SOMA [Concomitant]
  14. DURAGESIC-100 [Concomitant]
  15. LIDODERM [Concomitant]

REACTIONS (1)
  - DISEASE PROGRESSION [None]
